FAERS Safety Report 5795107-0 (Version None)
Quarter: 2008Q2

REPORT INFORMATION
  Report Type: 
  Country: None (occurrence: None)
  Receive Date: 20080630
  Receipt Date: 20080411
  Transmission Date: 20081010
  Serious: No
  Sender: FDA-Public Use
  Company Number: US-BRISTOL-MYERS SQUIBB COMPANY-14148274

PATIENT
  Age: 53 Year
  Sex: Female

DRUGS (6)
  1. ORENCIA [Suspect]
     Dosage: INFUSION: 4 LAST INFUSION: 09-APR-2008.
  2. PLAQUENIL [Concomitant]
  3. LIPITOR [Concomitant]
  4. SYNTHROID [Concomitant]
  5. FOLIC ACID [Concomitant]
  6. VITAMIN CAP [Concomitant]

REACTIONS (2)
  - EYELID OEDEMA [None]
  - RASH [None]
